FAERS Safety Report 6302489-X (Version None)
Quarter: 2009Q3

REPORT INFORMATION
  Report Type: 
  Country: None (occurrence: None)
  Receive Date: 20090810
  Receipt Date: 20090803
  Transmission Date: 20100115
  Serious: Yes (Other)
  Sender: FDA-Public Use
  Company Number: GB-ASTRAZENECA-2009SE06719

PATIENT
  Age: 25 Year
  Sex: Female

DRUGS (1)
  1. SEROQUEL [Suspect]
     Indication: MANIA
     Route: 048
     Dates: start: 20090601, end: 20090714

REACTIONS (1)
  - THROMBOCYTOPENIA [None]
